FAERS Safety Report 23367251 (Version 2)
Quarter: 2024Q1

REPORT INFORMATION
  Report Type: Spontaneous
  Country: NL (occurrence: NL)
  Receive Date: 20240104
  Receipt Date: 20240111
  Transmission Date: 20240409
  Serious: Yes (Hospitalization)
  Sender: FDA-Public Use
  Company Number: None

PATIENT
  Age: 71 Year
  Sex: Male
  Weight: 105 kg

DRUGS (14)
  1. CLINDAMYCIN HYDROCHLORIDE [Suspect]
     Active Substance: CLINDAMYCIN HYDROCHLORIDE
     Indication: Skin infection
     Dosage: 600 MG, 3X/DAY
     Dates: start: 20231113, end: 20231130
  2. ACENOCOUMAROL [Concomitant]
     Active Substance: ACENOCOUMAROL
     Dosage: TABLET, 1 MG (MILLIGRAM)
  3. SPIRONOLACTONE [Concomitant]
     Active Substance: SPIRONOLACTONE
     Dosage: TABLET, 25 MG (MILLIGRAM)
  4. BUMETANIDE [Concomitant]
     Active Substance: BUMETANIDE
     Dosage: TABLET, 1 MG (MILLIGRAM)
  5. DALTEPARIN [Concomitant]
     Active Substance: DALTEPARIN
     Dosage: INJECTION FLUID, 10000 IU/ML
  6. SIMVASTATIN [Concomitant]
     Active Substance: SIMVASTATIN
     Dosage: FILMOMHULDE TABLET, 10 MG (MILLIGRAM)
  7. PREDNISOLONE [Concomitant]
     Active Substance: PREDNISOLONE
     Dosage: TABLET, 5 MG (MILLIGRAM)
  8. BENZBROMARONE [Concomitant]
     Active Substance: BENZBROMARONE
     Dosage: TABLET, 50 MG (MILLIGRAM)
  9. IMURAN [Concomitant]
     Active Substance: AZATHIOPRINE
     Dosage: TABLET, 50 MG (MILLIGRAM)
  10. OMEPRAZOLE [Concomitant]
     Active Substance: OMEPRAZOLE
     Dosage: MAAGSAPRESISTENTE TABLET, 40 MG (MILLIGRAM)
  11. CALCIUM CARBONATE\CHOLECALCIFEROL [Concomitant]
     Active Substance: CALCIUM CARBONATE\CHOLECALCIFEROL
     Dosage: KAUWTABLET, 1,25 G (GRAM)/400 EENHEDEN
  12. METOPROLOL [Concomitant]
     Active Substance: METOPROLOL
     Dosage: TABLET, 50 MG (MILLIGRAM)
  13. IMURAN [Concomitant]
     Active Substance: AZATHIOPRINE
     Dosage: TABLET, 25 MG (MILLIGRAM)
  14. AMLODIPINE [Concomitant]
     Active Substance: AMLODIPINE BESYLATE
     Dosage: TABLET, 5 MG (MILLIGRAM)

REACTIONS (5)
  - Hypersensitivity [Recovering/Resolving]
  - Erythema [Recovering/Resolving]
  - Dry skin [Recovering/Resolving]
  - Pruritus [Recovering/Resolving]
  - Oedema peripheral [Recovering/Resolving]
